FAERS Safety Report 10239552 (Version 3)
Quarter: 2014Q3

REPORT INFORMATION
  Report Type: Spontaneous
  Country: JP (occurrence: JP)
  Receive Date: 20140616
  Receipt Date: 20140724
  Transmission Date: 20150326
  Serious: Yes (Death)
  Sender: FDA-Public Use
  Company Number: JP-BRISTOL-MYERS SQUIBB COMPANY-21001912

PATIENT
  Age: 76 Year
  Sex: Male
  Weight: 66.2 kg

DRUGS (18)
  1. ENTERONON-R [Concomitant]
     Active Substance: PROBIOTICS NOS
     Indication: GASTROINTESTINAL DISORDER
  2. NORMAL SALINE [Concomitant]
     Active Substance: SODIUM CHLORIDE
  3. LIPIDIL [Concomitant]
     Active Substance: FENOFIBRATE
     Indication: HYPERLIPIDAEMIA
     Dosage: TABS
  4. ALOXI [Concomitant]
     Active Substance: PALONOSETRON HYDROCHLORIDE
  5. POLARAMINE [Concomitant]
     Active Substance: DEXCHLORPHENIRAMINE MALEATE
  6. DEXART [Concomitant]
     Active Substance: DEXAMETHASONE SODIUM PHOSPHATE
  7. VILDAGLIPTIN [Concomitant]
     Active Substance: VILDAGLIPTIN
     Indication: DIABETES MELLITUS
     Dosage: EQUA TAB
     Route: 048
  8. SOLDEM 3A [Concomitant]
     Active Substance: CARBOHYDRATES\POTASSIUM CHLORIDE\SODIUM CHLORIDE\SODIUM LACTATE
  9. MAGNESIUM SULFATE [Concomitant]
     Active Substance: MAGNESIUM SULFATE
  10. TEGAFUR + GIMERACIL + OTERACIL POTASSIUM [Suspect]
     Active Substance: GIMERACIL\OTERACIL POTASSIUM\TEGAFUR
     Indication: GINGIVAL CANCER
     Dosage: 60MGX2/DAY
     Route: 050
     Dates: start: 20140520, end: 20140525
  11. CARBOPLATIN. [Concomitant]
     Active Substance: CARBOPLATIN
     Indication: GINGIVAL CANCER
     Route: 041
     Dates: start: 20140203
  12. JANUVIA [Concomitant]
     Active Substance: SITAGLIPTIN PHOSPHATE
     Indication: DIABETES MELLITUS
     Dosage: TAB
  13. ERBITUX [Suspect]
     Active Substance: CETUXIMAB
     Indication: GINGIVAL CANCER
     Dosage: 700MG WEEKLY 12AUG2013;400MG, WEEKLY AUG2013;700MG 03FEB2014;250MG WEEKLY FEB2014-07APR2014
     Route: 041
     Dates: start: 201306
  14. LOXONIN [Concomitant]
     Active Substance: LOXOPROFEN SODIUM
     Indication: PROCEDURAL PAIN
     Dosage: TABS;60MGX3/DAY
  15. MYSLEE [Concomitant]
     Active Substance: ZOLPIDEM TARTRATE
     Indication: INSOMNIA
     Dosage: TAB
     Route: 048
  16. OLMETEC [Concomitant]
     Active Substance: OLMESARTAN MEDOXOMIL
     Indication: HYPERTENSION
  17. PARIET [Concomitant]
     Active Substance: RABEPRAZOLE SODIUM
     Indication: GASTROENTERITIS
  18. 5-FU [Concomitant]
     Active Substance: FLUOROURACIL
     Indication: GINGIVAL CANCER
     Route: 041
     Dates: start: 20140203

REACTIONS (5)
  - Sepsis [Fatal]
  - Diarrhoea [Fatal]
  - Pneumatosis intestinalis [Fatal]
  - Gastrointestinal mucosal disorder [Fatal]
  - Melaena [Fatal]

NARRATIVE: CASE EVENT DATE: 20140527
